FAERS Safety Report 23742279 (Version 1)
Quarter: 2024Q2

REPORT INFORMATION
  Report Type: Report from Study
  Country: GB (occurrence: GB)
  Receive Date: 20240415
  Receipt Date: 20240415
  Transmission Date: 20240716
  Serious: Yes (Other)
  Sender: FDA-Public Use
  Company Number: GB-TAKEDA-2024TUS034698

PATIENT
  Sex: Female

DRUGS (1)
  1. VEDOLIZUMAB [Suspect]
     Active Substance: VEDOLIZUMAB
     Indication: Colitis ulcerative
     Dosage: 108 MILLIGRAM
     Route: 058
     Dates: start: 202307

REACTIONS (6)
  - Myocardial infarction [Unknown]
  - COVID-19 [Unknown]
  - Anaemia [Unknown]
  - Wrong technique in product usage process [Unknown]
  - Sinusitis [Unknown]
  - Fatigue [Unknown]
